FAERS Safety Report 8010109-1 (Version None)
Quarter: 2011Q4

REPORT INFORMATION
  Report Type: 
  Country: None (occurrence: None)
  Receive Date: 20111228
  Receipt Date: 20111219
  Transmission Date: 20120403
  Serious: Yes (Other)
  Sender: FDA-Public Use
  Company Number: GB-BRISTOL-MYERS SQUIBB COMPANY-16300469

PATIENT
  Age: 34 Year
  Sex: Male
  Weight: 65 kg

DRUGS (5)
  1. RITONAVIR [Concomitant]
     Dates: start: 20110817
  2. ACETAMINOPHEN [Concomitant]
     Dates: start: 20111012
  3. REYATAZ [Suspect]
     Dates: start: 20110817
  4. TRUVADA [Concomitant]
     Dates: start: 20110817
  5. ERYTHROMYCIN [Interacting]
     Dates: start: 20111129

REACTIONS (2)
  - DRUG INTERACTION [None]
  - JAUNDICE [None]
